FAERS Safety Report 4477460-3 (Version None)
Quarter: 2004Q4

REPORT INFORMATION
  Report Type: 
  Country: None (occurrence: None)
  Receive Date: 20041015
  Receipt Date: 20041001
  Transmission Date: 20050328
  Serious: Yes (Death)
  Sender: FDA-Public Use
  Company Number: 2004S1002442

PATIENT
  Age: 58 Year
  Sex: Male
  Weight: 79.8331 kg

DRUGS (10)
  1. CLOZAPINE [Suspect]
     Indication: BIPOLAR DISORDER
     Dosage: 25MG, TID, ORAL
     Route: 048
     Dates: start: 20010417
  2. CLOZAPINE [Suspect]
     Indication: SCHIZOAFFECTIVE DISORDER
     Dosage: 25MG, TID, ORAL
     Route: 048
     Dates: start: 20010417
  3. CLOZAPINE [Suspect]
     Indication: BIPOLAR DISORDER
     Dosage: 400MG HS, ORAL
     Route: 048
     Dates: start: 20010417
  4. CLOZAPINE [Suspect]
     Indication: SCHIZOAFFECTIVE DISORDER
     Dosage: 400MG HS, ORAL
     Route: 048
     Dates: start: 20010417
  5. BISACODYL [Concomitant]
  6. MAGNESIUM CITRATE [Concomitant]
  7. POLYEHTYLENE GLYCOL [Concomitant]
  8. DIVALPROEX SODIUM [Concomitant]
  9. BENZTROPINE MESYLATE [Concomitant]
  10. GEODON [Concomitant]

REACTIONS (5)
  - CARDIO-RESPIRATORY ARREST [None]
  - FOREIGN BODY ASPIRATION [None]
  - INTESTINAL OBSTRUCTION [None]
  - PNEUMONIA ASPIRATION [None]
  - SEPSIS [None]
